FAERS Safety Report 6768139-3 (Version None)
Quarter: 2010Q2

REPORT INFORMATION
  Report Type: 
  Country: None (occurrence: None)
  Receive Date: 20100610
  Receipt Date: 20100526
  Transmission Date: 20101027
  Serious: Yes (Death)
  Sender: FDA-Public Use
  Company Number: 2010002119

PATIENT
  Age: 48 Year
  Sex: Female

DRUGS (6)
  1. TARCEVA [Suspect]
     Indication: LUNG NEOPLASM MALIGNANT
     Dosage: 150 MG, QD, ORAL
     Route: 048
  2. DEXAMETHASONE [Concomitant]
  3. MORPHINE [Concomitant]
  4. BISACODYL (BISACODYL) [Concomitant]
  5. MIDAZOLAM HCL [Concomitant]
  6. OMEPRAZOLE [Concomitant]

REACTIONS (1)
  - DYSPNOEA [None]
